FAERS Safety Report 15056530 (Version 1)
Quarter: 2018Q2

REPORT INFORMATION
  Report Type: Spontaneous
  Country: US (occurrence: US)
  Receive Date: 20180623
  Receipt Date: 20180623
  Transmission Date: 20180711
  Serious: No
  Sender: FDA-Public Use
  Company Number: US-GLENMARK PHARMACEUTICALS-2018GMK033795

PATIENT

DRUGS (1)
  1. ZONISAMIDE. [Suspect]
     Active Substance: ZONISAMIDE
     Indication: BACK PAIN
     Dosage: 4 CAPSULES EVERY NIGHT AT BEDTIME
     Route: 065

REACTIONS (13)
  - Feeding disorder [Recovered/Resolved]
  - Thinking abnormal [Recovered/Resolved]
  - Road traffic accident [Unknown]
  - Insomnia [Recovered/Resolved]
  - Abnormal behaviour [Recovered/Resolved]
  - Food aversion [Recovered/Resolved]
  - Weight decreased [Unknown]
  - Confusional state [Recovered/Resolved]
  - Fear [Recovered/Resolved]
  - Product use in unapproved indication [Unknown]
  - Malaise [Recovered/Resolved]
  - Somnolence [Recovered/Resolved]
  - Nausea [Recovered/Resolved]
